FAERS Safety Report 20993387 (Version 1)
Quarter: 2022Q2

REPORT INFORMATION
  Report Type: Spontaneous
  Country: US (occurrence: None)
  Receive Date: 20220622
  Receipt Date: 20220622
  Transmission Date: 20220721
  Serious: Yes (Death)
  Sender: FDA-Public Use
  Company Number: None

PATIENT
  Age: 89 Year
  Sex: Female

DRUGS (1)
  1. TERIPARATIDE [Suspect]
     Active Substance: TERIPARATIDE
     Indication: Osteoporosis
     Dosage: 20 MCG QD UNDER THE SKIN?
     Route: 058
     Dates: start: 20220506, end: 20220613

REACTIONS (2)
  - Disease complication [None]
  - Cardiac disorder [None]

NARRATIVE: CASE EVENT DATE: 20220613
